FAERS Safety Report 5960158-X (Version None)
Quarter: 2008Q4

REPORT INFORMATION
  Report Type: 
  Country: None (occurrence: None)
  Receive Date: 20081120
  Receipt Date: 20081111
  Transmission Date: 20090506
  Serious: Yes (Death, Hospitalization)
  Sender: FDA-Public Use
  Company Number: US-ELI_LILLY_AND_COMPANY-US200808000892

PATIENT
  Sex: Male
  Weight: 129.25 kg

DRUGS (11)
  1. BYETTA [Suspect]
     Indication: DIABETES MELLITUS
     Dosage: 10 UG, 2/D
     Route: 058
     Dates: start: 20080521, end: 20080601
  2. FUROSEMIDE [Concomitant]
     Dosage: 40 MG, UNK
  3. CARDIZEM [Concomitant]
     Dosage: 300 MG, UNK
  4. ZOCOR [Concomitant]
     Dosage: 40 MG, UNK
  5. GLYBURIDE [Concomitant]
     Dosage: 5 MG, UNK
  6. PLAVIX [Concomitant]
     Dosage: 75 MG, UNK
  7. AVAPRO [Concomitant]
     Dosage: 300 MG, UNK
  8. PERCOCET [Concomitant]
  9. COLCHICINE [Concomitant]
     Dosage: 0.6 MG, UNK
  10. TRAMADOL HCL [Concomitant]
     Dosage: 50 MG, UNK
  11. XOPENEX [Concomitant]
     Route: 055

REACTIONS (2)
  - ANAPHYLACTIC REACTION [None]
  - SURGERY [None]
